FAERS Safety Report 9973809 (Version 5)
Quarter: 2014Q1

REPORT INFORMATION
  Report Type: Report from Study
  Country: CA (occurrence: CA)
  Receive Date: 20140306
  Receipt Date: 20140314
  Transmission Date: 20141002
  Serious: Yes (Other)
  Sender: FDA-Public Use
  Company Number: PHHY2012CA078977

PATIENT
  Age: 51 Year
  Sex: Male

DRUGS (5)
  1. CLOZARIL [Suspect]
     Indication: SCHIZOPHRENIA
     Dosage: UNK UKN, UNK
     Route: 048
     Dates: start: 19940719, end: 20120830
  2. CLOZARIL [Suspect]
     Dosage: 250 MG, QHS
     Route: 048
     Dates: start: 20130723, end: 20140303
  3. PROZAC [Concomitant]
     Dosage: 40 MG, DAILY
  4. VALIUM [Concomitant]
     Dosage: UNK UKN, UNK
  5. CODEINE [Concomitant]
     Dosage: UNK UKN, UNK

REACTIONS (5)
  - Road traffic accident [Unknown]
  - Leukopenia [Unknown]
  - Neutropenia [Not Recovered/Not Resolved]
  - Thrombocytopenia [Unknown]
  - Anaemia [Unknown]
